FAERS Safety Report 7475892-2 (Version None)
Quarter: 2011Q2

REPORT INFORMATION
  Report Type: 
  Country: None (occurrence: None)
  Receive Date: 20110504
  Receipt Date: 20110419
  Transmission Date: 20111010
  Serious: Yes (Other)
  Sender: FDA-Public Use
  Company Number: 029369

PATIENT
  Age: 17 Year

DRUGS (8)
  1. DIAMOX /00016901/ [Concomitant]
  2. ZONISAMIDE [Concomitant]
  3. LAMICTAL [Concomitant]
  4. PHENOBAL /00023201/ [Concomitant]
  5. CLONAZEPAM [Concomitant]
  6. KEPPRA [Suspect]
     Indication: EPILEPSY
     Dosage: (500 MG BID ORAL), (2000 MG ORAL), (1000 MG ORAL)
     Route: 048
     Dates: start: 20110207, end: 20110220
  7. KEPPRA [Suspect]
     Indication: EPILEPSY
     Dosage: (500 MG BID ORAL), (2000 MG ORAL), (1000 MG ORAL)
     Route: 048
     Dates: start: 20110221, end: 20110222
  8. KEPPRA [Suspect]
     Indication: EPILEPSY
     Dosage: (500 MG BID ORAL), (2000 MG ORAL), (1000 MG ORAL)
     Route: 048
     Dates: start: 20110223, end: 20110228

REACTIONS (2)
  - DYSKINESIA [None]
  - MYOCLONUS [None]
